FAERS Safety Report 23993392 (Version 1)
Quarter: 2024Q2

REPORT INFORMATION
  Report Type: Spontaneous
  Country: US (occurrence: US)
  Receive Date: 20240620
  Receipt Date: 20240620
  Transmission Date: 20240715
  Serious: Yes (Other)
  Sender: FDA-Public Use
  Company Number: US-OPELLA-2024OHG021129

PATIENT
  Age: 74 Year
  Sex: Male

DRUGS (1)
  1. GOLD BOND MEDICATED ORIGINAL STRENGTH BODY [Suspect]
     Active Substance: MENTHOL
     Indication: Product used for unknown indication

REACTIONS (7)
  - Pleural mesothelioma malignant [Unknown]
  - Hypothyroidism [Unknown]
  - Circadian rhythm sleep disorder [Unknown]
  - Decreased appetite [Unknown]
  - Abnormal loss of weight [Unknown]
  - Constipation [Unknown]
  - Dyspnoea [Unknown]
